FAERS Safety Report 8239941-6 (Version None)
Quarter: 2012Q1

REPORT INFORMATION
  Report Type: 
  Country: None (occurrence: None)
  Receive Date: 20120328
  Receipt Date: 20120322
  Transmission Date: 20120608
  Serious: No
  Sender: FDA-Public Use
  Company Number: US-PFIZER INC-2012027248

PATIENT
  Sex: Female

DRUGS (2)
  1. EFFEXOR XR [Suspect]
     Dosage: 150 MG
  2. EFFEXOR XR [Suspect]
     Dosage: 225 MG DAILY DOSE

REACTIONS (1)
  - FEELING ABNORMAL [None]
